FAERS Safety Report 6722183-0 (Version None)
Quarter: 2010Q2

REPORT INFORMATION
  Report Type: 
  Country: None (occurrence: None)
  Receive Date: 20100512
  Receipt Date: 20100506
  Transmission Date: 20101027
  Serious: Yes (Other)
  Sender: FDA-Public Use
  Company Number: ES-MERCK-1005ESP00017

PATIENT
  Age: 60 Year
  Sex: Male
  Weight: 83 kg

DRUGS (6)
  1. JANUMET [Suspect]
     Indication: DIABETES MELLITUS
     Route: 048
     Dates: start: 20090716, end: 20090901
  2. ALLOPURINOL [Concomitant]
     Indication: GOUT
     Route: 065
     Dates: start: 20070101
  3. AMLODIPINE [Concomitant]
     Indication: HYPERTENSION
     Route: 048
     Dates: start: 20080101
  4. HYDROCHLOROTHIAZIDE AND VALSARTAN [Concomitant]
     Indication: HYPERTENSION
     Route: 065
     Dates: start: 20080101
  5. SIMVASTATIN [Concomitant]
     Indication: HYPERLIPIDAEMIA
     Route: 065
     Dates: start: 20080101
  6. GLICLAZIDE [Concomitant]
     Indication: DIABETES MELLITUS
     Route: 065
     Dates: start: 20070101

REACTIONS (1)
  - UPPER GASTROINTESTINAL HAEMORRHAGE [None]
